FAERS Safety Report 7028904-4 (Version None)
Quarter: 2010Q4

REPORT INFORMATION
  Report Type: 
  Country: None (occurrence: None)
  Receive Date: 20101005
  Receipt Date: 20100923
  Transmission Date: 20110411
  Serious: Yes (Other)
  Sender: FDA-Public Use
  Company Number: US-PFIZER INC-2010121759

PATIENT
  Sex: Male

DRUGS (2)
  1. LYRICA [Suspect]
     Indication: AXONAL NEUROPATHY
     Dosage: 75 MG DAILY, AT NIGHT
     Route: 048
     Dates: start: 20050101
  2. GABAPENTIN [Suspect]
     Indication: NEUROPATHY PERIPHERAL
     Dosage: UNK
     Route: 048

REACTIONS (2)
  - BURNING SENSATION [None]
  - DEPRESSION [None]
